FAERS Safety Report 7742793-1 (Version None)
Quarter: 2011Q3

REPORT INFORMATION
  Report Type: 
  Country: None (occurrence: None)
  Receive Date: 20110912
  Receipt Date: 20110901
  Transmission Date: 20111222
  Serious: No
  Sender: FDA-Public Use
  Company Number: JP-JNJFOC-20110706693

PATIENT
  Age: 6 Decade
  Sex: Female

DRUGS (2)
  1. FENTANYL CITRATE [Suspect]
     Route: 062
  2. FENTANYL CITRATE [Suspect]
     Indication: PAIN
     Route: 062

REACTIONS (2)
  - TREATMENT NONCOMPLIANCE [None]
  - SOMNOLENCE [None]
